FAERS Safety Report 19354467 (Version 1)
Quarter: 2021Q2

REPORT INFORMATION
  Report Type: Spontaneous
  Country: US (occurrence: US)
  Receive Date: 20210531
  Receipt Date: 20210531
  Transmission Date: 20210717
  Serious: Yes (Death, Other)
  Sender: FDA-Public Use
  Company Number: US-PURDUE-USA-2020-0157095

PATIENT
  Age: 34 Year
  Sex: Male

DRUGS (2)
  1. FENTANYL. [Suspect]
     Active Substance: FENTANYL
     Indication: PRODUCT USED FOR UNKNOWN INDICATION
     Dosage: UNK
     Route: 065
     Dates: end: 20140403
  2. OXYCONTIN [Suspect]
     Active Substance: OXYCODONE HYDROCHLORIDE
     Indication: PAIN
     Dosage: 30 MG, UNK
     Route: 048
     Dates: start: 2002, end: 2013

REACTIONS (6)
  - Cardiomegaly [Unknown]
  - Intentional product misuse [Unknown]
  - Accidental overdose [Fatal]
  - Withdrawal syndrome [Recovered/Resolved]
  - Drug dependence [Unknown]
  - Heat stroke [Unknown]

NARRATIVE: CASE EVENT DATE: 2013
